FAERS Safety Report 25740444 (Version 2)
Quarter: 2025Q3

REPORT INFORMATION
  Report Type: Report from Study
  Country: EG (occurrence: EG)
  Receive Date: 20250829
  Receipt Date: 20250909
  Transmission Date: 20251021
  Serious: Yes (Other)
  Sender: NOVARTIS
  Company Number: EG-002147023-NVSC2025EG135272

PATIENT
  Age: 44 Year
  Sex: Female
  Weight: 86 kg

DRUGS (7)
  1. KISQALI [Suspect]
     Active Substance: RIBOCICLIB SUCCINATE
     Indication: Breast cancer
     Dosage: 2 DOSAGE FORM, QD (200 MG, 2 TABS ONCE DAILY FOR3 WEEKS AND 1 WEEK OFF)
     Route: 048
     Dates: start: 202501
  2. KISQALI [Suspect]
     Active Substance: RIBOCICLIB SUCCINATE
     Dosage: 3 DOSAGE FORM, QD (200 MG, 3 TABS ONCE DAILY FOR3 WEEKS AND 1 WEEK OFF)
     Route: 048
  3. FEMARA [Suspect]
     Active Substance: LETROZOLE
     Indication: Adjuvant therapy
     Dosage: UNK UNK, QD
     Route: 048
     Dates: start: 202501
  4. OSTEOCARE [Concomitant]
     Active Substance: CALCIUM\CHOLECALCIFEROL\MAGNESIUM\ZINC
     Indication: Bone disorder
     Dosage: UNK, BID (TABLET)
     Route: 048
     Dates: start: 202501
  5. NEUPOGEN [Concomitant]
     Active Substance: FILGRASTIM
     Indication: Decreased immune responsiveness
     Dosage: 1 DOSAGE FORM, QD (30MU) (SOLUTION FOR INJECTION) (STARTED 5 MONTHS AGO)
     Route: 058
  6. GOSERELIN [Concomitant]
     Active Substance: GOSERELIN
     Indication: Product used for unknown indication
     Dosage: 150 MG, Q3MO (ONE INJECTION EVERY 3 MONTHS))
     Route: 030
     Dates: start: 202501
  7. LEVOTHYROXINE [Concomitant]
     Active Substance: LEVOTHYROXINE
     Indication: Hypothyroidism
     Dosage: 100 MG, QD (START DATE: 4 YEARS AGO)
     Route: 048
     Dates: start: 2020

REACTIONS (6)
  - Blood cholesterol increased [Not Recovered/Not Resolved]
  - Oedema peripheral [Not Recovered/Not Resolved]
  - White blood cell count decreased [Recovering/Resolving]
  - Osteoporosis [Not Recovered/Not Resolved]
  - Mobility decreased [Not Recovered/Not Resolved]
  - Vitamin D decreased [Not Recovered/Not Resolved]

NARRATIVE: CASE EVENT DATE: 20250101
